FAERS Safety Report 8618083-1 (Version None)
Quarter: 2012Q3

REPORT INFORMATION
  Report Type: 
  Country: None (occurrence: None)
  Receive Date: 20120824
  Receipt Date: 20120425
  Transmission Date: 20120928
  Serious: No
  Sender: FDA-Public Use
  Company Number: US-ASTRAZENECA-2012SE27041

PATIENT
  Age: 64 Year
  Sex: Male

DRUGS (1)
  1. SYMBICORT [Suspect]
     Dosage: 160/4.5MCG 2 INHALATIONS TWICE DAILY
     Route: 055

REACTIONS (5)
  - ABDOMINAL PAIN [None]
  - DEPRESSION [None]
  - HEADACHE [None]
  - INTENTIONAL DRUG MISUSE [None]
  - FATIGUE [None]
